FAERS Safety Report 12550226 (Version 2)
Quarter: 2016Q3

REPORT INFORMATION
  Report Type: Report from Study
  Country: US (occurrence: US)
  Receive Date: 20160712
  Receipt Date: 20160729
  Transmission Date: 20161109
  Serious: Yes (Death, Hospitalization, Other)
  Sender: FDA-Public Use
  Company Number: US-GILEAD-2016-0222003

PATIENT
  Age: 55 Year
  Sex: Female
  Weight: 79.55 kg

DRUGS (16)
  1. GENERLAC [Concomitant]
     Active Substance: LACTULOSE
     Dosage: UNK
  2. LASIX [Concomitant]
     Active Substance: FUROSEMIDE
     Dosage: UNK
  3. MUPIROCIN. [Concomitant]
     Active Substance: MUPIROCIN
     Dosage: UNK
     Route: 061
  4. LEDIPASVIR/SOFOSBUVIR [Suspect]
     Active Substance: LEDIPASVIR\SOFOSBUVIR
     Indication: CHRONIC HEPATITIS C
     Dosage: 1 DF, UNK
     Route: 048
     Dates: start: 20160616
  5. ASA [Concomitant]
     Active Substance: ASPIRIN
     Dosage: UNK
  6. LORTAB [Concomitant]
     Active Substance: ACETAMINOPHEN\HYDROCODONE BITARTRATE
     Dosage: UNK
  7. PROPRANOLOL HYDROCHLORIDE. [Concomitant]
     Active Substance: PROPRANOLOL HYDROCHLORIDE
     Dosage: UNK
  8. SOMA [Concomitant]
     Active Substance: CARISOPRODOL
     Dosage: UNK
  9. METHADONE [Concomitant]
     Active Substance: METHADONE HYDROCHLORIDE
     Dosage: UNK
  10. ZESTORETIC [Concomitant]
     Active Substance: HYDROCHLOROTHIAZIDE\LISINOPRIL
     Dosage: UNK
  11. CLINDAMYCIN [Concomitant]
     Active Substance: CLINDAMYCIN\CLINDAMYCIN PHOSPHATE
     Dosage: UNK
     Route: 061
  12. ELOCON [Concomitant]
     Active Substance: MOMETASONE FUROATE
     Dosage: UNK
     Route: 061
  13. ATORVASTATIN CALCIUM. [Concomitant]
     Active Substance: ATORVASTATIN CALCIUM
     Dosage: UNK
  14. DOXYCYCLINE HYCLATE. [Concomitant]
     Active Substance: DOXYCYCLINE HYCLATE
     Dosage: UNK
     Route: 048
  15. GLIPIZIDE. [Concomitant]
     Active Substance: GLIPIZIDE
     Dosage: UNK
  16. KLOR-CON [Concomitant]
     Active Substance: POTASSIUM CHLORIDE
     Dosage: UNK

REACTIONS (13)
  - Multiple organ dysfunction syndrome [Unknown]
  - Abdominal pain [Unknown]
  - Acute respiratory failure [Unknown]
  - Acute kidney injury [Unknown]
  - Pneumonia [Unknown]
  - Cardio-respiratory arrest [Unknown]
  - Thrombocytopenia [Unknown]
  - Acute on chronic liver failure [Unknown]
  - Hepatic encephalopathy [Unknown]
  - Hepatorenal syndrome [Unknown]
  - Sepsis [Unknown]
  - Coagulopathy [Unknown]
  - Death [Fatal]

NARRATIVE: CASE EVENT DATE: 2016
